FAERS Safety Report 4505014-9 (Version None)
Quarter: 2004Q4

REPORT INFORMATION
  Report Type: 
  Country: None (occurrence: None)
  Receive Date: 20041015
  Receipt Date: 20031016
  Transmission Date: 20050328
  Serious: Yes (Other)
  Sender: FDA-Public Use
  Company Number: 2003112721

PATIENT
  Sex: Male

DRUGS (4)
  1. NEURONTIN [Suspect]
     Indication: PAIN
     Dosage: 600 MG (DAILY), ORAL
     Route: 048
     Dates: end: 20031014
  2. HYDROCHLOROTHIAZIDE [Concomitant]
  3. NADOLOL [Concomitant]
  4. ATORVASTATIN (ATORVASTATIN) [Concomitant]

REACTIONS (2)
  - BLOOD PRESSURE DECREASED [None]
  - HYPERTENSION [None]
